FAERS Safety Report 4873949-3 (Version None)
Quarter: 2006Q1

REPORT INFORMATION
  Report Type: 
  Country: None (occurrence: None)
  Receive Date: 20060103
  Receipt Date: 20060103
  Transmission Date: 20060701
  Serious: Yes (Hospitalization)
  Sender: FDA-Public Use
  Company Number: None

PATIENT
  Sex: Male
  Weight: 76.4 kg

DRUGS (1)
  1. SIROLIMUS [Suspect]
     Indication: RENAL TRANSPLANT
     Dosage: 5MG QDAY PO
     Route: 048

REACTIONS (2)
  - MUSCULOSKELETAL CHEST PAIN [None]
  - PNEUMONITIS [None]
